FAERS Safety Report 26149094 (Version 1)
Quarter: 2025Q4

REPORT INFORMATION
  Report Type: Spontaneous
  Country: CN (occurrence: CN)
  Receive Date: 20251212
  Receipt Date: 20251212
  Transmission Date: 20260118
  Serious: Yes (Other)
  Sender: MACLEODS
  Company Number: CN-MLMSERVICE-20251125-PI726573-00201-1

PATIENT

DRUGS (14)
  1. LIDOCAINE [Suspect]
     Active Substance: LIDOCAINE
     Indication: Local anaesthesia
     Dosage: 2 PERCENT
     Route: 065
  2. DEXAMETHASONE [Suspect]
     Active Substance: DEXAMETHASONE
     Indication: Prophylaxis
  3. METHOTREXATE [Suspect]
     Active Substance: METHOTREXATE
     Indication: Prophylaxis
  4. CYTARABINE [Suspect]
     Active Substance: CYTARABINE
     Indication: Prophylaxis
  5. RITUXIMAB [Concomitant]
     Active Substance: RITUXIMAB
     Route: 065
  6. RITUXIMAB [Concomitant]
     Active Substance: RITUXIMAB
  7. CYCLOPHOSPHAMIDE [Concomitant]
     Active Substance: CYCLOPHOSPHAMIDE
     Route: 065
  8. CYCLOPHOSPHAMIDE [Concomitant]
     Active Substance: CYCLOPHOSPHAMIDE
  9. VINCRISTINE [Concomitant]
     Active Substance: VINCRISTINE
     Route: 065
  10. VINCRISTINE [Concomitant]
     Active Substance: VINCRISTINE
  11. PREDNISONE [Concomitant]
     Active Substance: PREDNISONE
     Dosage: DAYS 1 TO 5
     Route: 065
  12. PREDNISONE [Concomitant]
     Active Substance: PREDNISONE
  13. LENALIDOMIDE [Concomitant]
     Active Substance: LENALIDOMIDE
     Dosage: DAYS 1 TO 10
     Route: 065
  14. LENALIDOMIDE [Concomitant]
     Active Substance: LENALIDOMIDE

REACTIONS (1)
  - Spontaneous penile erection [Recovered/Resolved]
